FAERS Safety Report 23988713 (Version 3)
Quarter: 2024Q3

REPORT INFORMATION
  Report Type: Spontaneous
  Country: US (occurrence: US)
  Receive Date: 20240619
  Receipt Date: 20240704
  Transmission Date: 20241017
  Serious: Yes (Death, Hospitalization, Other)
  Sender: NOVARTIS
  Company Number: US-002147023-NVSC2024US127282

PATIENT
  Age: 79 Year
  Sex: Male

DRUGS (1)
  1. PLUVICTO [Suspect]
     Active Substance: LUTETIUM LU-177 VIPIVOTIDE TETRAXETAN
     Indication: Prostate cancer
     Dosage: UNK
     Route: 065
     Dates: start: 20240414, end: 20240416

REACTIONS (8)
  - Pneumonia [Fatal]
  - Head injury [Fatal]
  - Subdural haematoma [Unknown]
  - Dementia [Unknown]
  - Mental disorder [Unknown]
  - Aggression [Unknown]
  - Atrophy [Unknown]
  - Fall [Unknown]

NARRATIVE: CASE EVENT DATE: 20240525
